FAERS Safety Report 8165476-5 (Version None)
Quarter: 2012Q1

REPORT INFORMATION
  Report Type: 
  Country: None (occurrence: None)
  Receive Date: 20120227
  Receipt Date: 20110902
  Transmission Date: 20120608
  Serious: No
  Sender: FDA-Public Use
  Company Number: US-MYLANLABS-2011S1018663

PATIENT
  Sex: Female

DRUGS (2)
  1. METOPROLOL TARTRATE [Suspect]
     Indication: ATRIAL FIBRILLATION
     Route: 048
     Dates: start: 20110901, end: 20110902
  2. METOPROLOL TARTRATE [Suspect]
     Indication: ANGINA PECTORIS
     Route: 048
     Dates: start: 20110901, end: 20110902

REACTIONS (3)
  - DYSPNOEA [None]
  - ANGINA PECTORIS [None]
  - BLOOD PRESSURE INCREASED [None]
